FAERS Safety Report 9649591 (Version 1)
Quarter: 2013Q4

REPORT INFORMATION
  Report Type: Spontaneous
  Country: FR (occurrence: None)
  Receive Date: 20131025
  Receipt Date: 20131025
  Transmission Date: 20140711
  Serious: Yes (Hospitalization)
  Sender: FDA-Public Use
  Company Number: DSM-2013-00969

PATIENT
  Age: 61 Year
  Sex: Female

DRUGS (5)
  1. OLMETEC [Suspect]
     Indication: HYPERTENSION
     Route: 048
     Dates: end: 20130923
  2. INEXIUM [Suspect]
     Indication: PRODUCT USED FOR UNKNOWN INDICATION
     Route: 048
     Dates: end: 20130923
  3. ACICLOVIR (ACICLOVIR) (ACICLOVIR) [Concomitant]
  4. TEMERIT (NEBIVOLOL) (NEBIVOLOL) [Concomitant]
  5. LEVOTHYROX (LEVOTHYROX) [Concomitant]

REACTIONS (5)
  - Nervous system disorder [None]
  - Hyponatraemia [None]
  - Headache [None]
  - Blood creatinine increased [None]
  - Brain scan abnormal [None]
